FAERS Safety Report 10079643 (Version 1)
Quarter: 2014Q2

REPORT INFORMATION
  Report Type: Spontaneous
  Country: GB (occurrence: GB)
  Receive Date: 20140415
  Receipt Date: 20140415
  Transmission Date: 20141212
  Serious: Yes (Other)
  Sender: FDA-Public Use
  Company Number: GB-GLAXOSMITHKLINE-B0984799A

PATIENT
  Age: 56 Year
  Sex: Female
  Weight: 95 kg

DRUGS (4)
  1. ORLISTAT [Suspect]
     Route: 048
     Dates: start: 20140324
  2. CITALOPRAM [Concomitant]
     Dates: start: 20131219
  3. DOXYCYCLINE [Concomitant]
     Dates: start: 20140212, end: 20140219
  4. FOSTAIR [Concomitant]
     Dates: start: 20140110, end: 20140328

REACTIONS (2)
  - Mucocutaneous rash [Recovering/Resolving]
  - Drug eruption [Recovering/Resolving]
